FAERS Safety Report 9145525 (Version 1)
Quarter: 2013Q1

REPORT INFORMATION
  Report Type: Spontaneous
  Country: US (occurrence: US)
  Receive Date: 20130307
  Receipt Date: 20130307
  Transmission Date: 20140127
  Serious: No
  Sender: FDA-Public Use
  Company Number: US-PFIZER INC-2013077644

PATIENT
  Sex: 0

DRUGS (2)
  1. XALKORI [Suspect]
     Dosage: UNK
  2. ACIPHEX [Suspect]
     Dosage: UNK

REACTIONS (4)
  - Oedema [Unknown]
  - Blood calcium increased [Unknown]
  - Disease progression [Unknown]
  - Neoplasm malignant [Unknown]
